FAERS Safety Report 4569551-3 (Version None)
Quarter: 2005Q1

REPORT INFORMATION
  Report Type: 
  Country: None (occurrence: None)
  Receive Date: 20050201
  Receipt Date: 20050110
  Transmission Date: 20050727
  Serious: Yes (Other)
  Sender: FDA-Public Use
  Company Number: GBS041216097

PATIENT
  Age: 7 Year
  Sex: Female
  Weight: 29 kg

DRUGS (2)
  1. STRATTERA [Suspect]
     Indication: ATTENTION DEFICIT/HYPERACTIVITY DISORDER
     Dosage: 50 MG DAY
     Dates: start: 20040917, end: 20041201
  2. RISPERIDONE [Concomitant]

REACTIONS (8)
  - AGGRESSION [None]
  - ANGER [None]
  - CONDITION AGGRAVATED [None]
  - DEPRESSED MOOD [None]
  - SCREAMING [None]
  - SELF ESTEEM DECREASED [None]
  - SUICIDAL IDEATION [None]
  - THERAPY NON-RESPONDER [None]
